FAERS Safety Report 19967842 (Version 1)
Quarter: 2021Q4

REPORT INFORMATION
  Report Type: Spontaneous
  Country: US (occurrence: US)
  Receive Date: 20211015
  Receipt Date: 20211015
  Transmission Date: 20220303
  Serious: Yes (Hospitalization)
  Sender: FDA-Public Use
  Company Number: None

PATIENT
  Age: 70 Year
  Sex: Male
  Weight: 81 kg

DRUGS (1)
  1. FUROSEMIDE [Suspect]
     Active Substance: FUROSEMIDE
     Indication: Peripheral venous disease
     Route: 048
     Dates: end: 20210720

REACTIONS (4)
  - Hypokalaemia [None]
  - Electrocardiogram QT prolonged [None]
  - Metabolic alkalosis [None]
  - Acute kidney injury [None]

NARRATIVE: CASE EVENT DATE: 20210721
